FAERS Safety Report 20999674 (Version 1)
Quarter: 2022Q2

REPORT INFORMATION
  Report Type: Spontaneous
  Country: US (occurrence: None)
  Receive Date: 20220623
  Receipt Date: 20220623
  Transmission Date: 20220721
  Serious: No
  Sender: FDA-Public Use
  Company Number: None

PATIENT
  Age: 38 Year
  Sex: Male
  Weight: 110.25 kg

DRUGS (5)
  1. PAXLOVID [Suspect]
     Active Substance: NIRMATRELVIR\RITONAVIR
     Indication: COVID-19
     Dosage: OTHER QUANTITY : 3 TABLET(S);?FREQUENCY : TWICE A DAY;?
     Route: 048
     Dates: start: 20220608, end: 20220613
  2. Emtricitabine-Tenofovir 200-300MG, 1 daily [Concomitant]
  3. ZYRTEC [Concomitant]
     Active Substance: CETIRIZINE HYDROCHLORIDE
  4. vitamins B/C/D [Concomitant]
  5. FISH OIL [Concomitant]
     Active Substance: FISH OIL

REACTIONS (4)
  - Headache [None]
  - Fatigue [None]
  - Nasal congestion [None]
  - COVID-19 [None]

NARRATIVE: CASE EVENT DATE: 20220622
